FAERS Safety Report 13290514 (Version 5)
Quarter: 2017Q2

REPORT INFORMATION
  Report Type: Report from Study
  Country: TR (occurrence: TR)
  Receive Date: 20170303
  Receipt Date: 20170623
  Transmission Date: 20170830
  Serious: Yes (Death, Hospitalization)
  Sender: FDA-Public Use
  Company Number: TR-ROCHE-1888302

PATIENT
  Age: 69 Year
  Sex: Male
  Weight: 63.8 kg

DRUGS (9)
  1. BEVACIZUMAB [Suspect]
     Active Substance: BEVACIZUMAB
     Indication: RENAL CELL CARCINOMA
     Dosage: (STANDARD DOSING PER PROTOCOL)?MOST RECENT DOSE PRIOR TO AE ONSET: 12/APR/2016 (1083 MG)
     Route: 042
     Dates: start: 20151126
  2. ZYCAL [Concomitant]
     Indication: PRURITUS
     Route: 048
     Dates: start: 20151217, end: 20170306
  3. CODEINE PHOSPHATE/PARACETAMOL [Concomitant]
     Active Substance: ACETAMINOPHEN\CODEINE PHOSPHATE
     Indication: PAIN
     Route: 048
     Dates: start: 20160617, end: 20170306
  4. NORVASC [Concomitant]
     Active Substance: AMLODIPINE BESYLATE
     Indication: HYPERTENSION
     Route: 048
     Dates: start: 20160107, end: 20170306
  5. LEVOTHYROXINE SODIUM. [Concomitant]
     Active Substance: LEVOTHYROXINE SODIUM
     Indication: HYPOTHYROIDISM
     Route: 048
     Dates: start: 20160617, end: 20170306
  6. POTASSIUM POLYSTYRENE SULPHONATE [Concomitant]
     Indication: HYPERKALAEMIA
     Route: 048
     Dates: start: 20160505, end: 20170306
  7. LEVOTHYROXINE SODIUM. [Concomitant]
     Active Substance: LEVOTHYROXINE SODIUM
     Route: 048
     Dates: start: 20160929, end: 20170306
  8. ATEZOLIZUMAB [Suspect]
     Active Substance: ATEZOLIZUMAB
     Indication: RENAL CELL CARCINOMA
     Dosage: (STANDARD DOSING PER PROTOCOL)?MOST RECENT DOSE PRIOR TO AE ONSET: 12/JAN/2017 (1200 MG)
     Route: 042
     Dates: start: 20151126
  9. DOXAZOSIN MESYLATE. [Concomitant]
     Active Substance: DOXAZOSIN MESYLATE
     Indication: HYPERTENSION
     Route: 048
     Dates: start: 20160107, end: 20170306

REACTIONS (1)
  - Sepsis [Fatal]

NARRATIVE: CASE EVENT DATE: 20170131
